FAERS Safety Report 21421912 (Version 7)
Quarter: 2024Q2

REPORT INFORMATION
  Report Type: Spontaneous
  Country: JP (occurrence: JP)
  Receive Date: 20221007
  Receipt Date: 20240401
  Transmission Date: 20240716
  Serious: Yes (Life-Threatening, Hospitalization, Other)
  Sender: FDA-Public Use
  Company Number: JP-BRISTOL-MYERS SQUIBB COMPANY-2022-116426

PATIENT
  Age: 53 Year
  Sex: Female

DRUGS (5)
  1. YERVOY [Suspect]
     Active Substance: IPILIMUMAB
     Indication: Malignant melanoma
     Route: 041
     Dates: start: 202010
  2. YERVOY [Suspect]
     Active Substance: IPILIMUMAB
     Dosage: 3 MG/KG, Q3W
     Route: 041
     Dates: start: 20220826, end: 20221002
  3. OPDIVO [Suspect]
     Active Substance: NIVOLUMAB
     Indication: Malignant melanoma
     Route: 042
  4. OPDIVO [Suspect]
     Active Substance: NIVOLUMAB
     Dosage: DOSE UNSPECIFIED
     Route: 041
     Dates: start: 202010
  5. OPDIVO [Suspect]
     Active Substance: NIVOLUMAB
     Route: 041
     Dates: start: 202112, end: 202207

REACTIONS (8)
  - Fulminant type 1 diabetes mellitus [Not Recovered/Not Resolved]
  - Depressed level of consciousness [Recovering/Resolving]
  - Myocarditis [Recovering/Resolving]
  - Aspartate aminotransferase increased [Recovered/Resolved]
  - Alanine aminotransferase increased [Recovered/Resolved]
  - Thyroiditis subacute [Recovered/Resolved]
  - Coma [Unknown]
  - Delirium [Recovering/Resolving]

NARRATIVE: CASE EVENT DATE: 20201001
